FAERS Safety Report 7125035-X (Version None)
Quarter: 2010Q4

REPORT INFORMATION
  Report Type: 
  Country: None (occurrence: None)
  Receive Date: 20101129
  Receipt Date: 20101119
  Transmission Date: 20110411
  Serious: Yes (Disabling)
  Sender: FDA-Public Use
  Company Number: AU-ASTRAZENECA-2010SE44125

PATIENT
  Age: 30081 Day
  Sex: Female
  Weight: 80 kg

DRUGS (6)
  1. SYMBICORT SMART [Suspect]
     Route: 055
  2. PERINDOPRIL ERBUMINE [Concomitant]
     Indication: HYPERTENSION
     Route: 048
     Dates: start: 20040101
  3. KARVEZIDE [Concomitant]
     Indication: HYPERTENSION
     Dosage: 300/12.5
     Route: 048
     Dates: start: 20040101
  4. NOTEN [Concomitant]
     Indication: HYPERTENSION
     Route: 048
     Dates: start: 20040101
  5. ZANIDIP [Concomitant]
     Indication: HYPERTENSION
     Route: 048
     Dates: start: 20040101
  6. ZOCOR [Concomitant]
     Indication: HYPERTENSION

REACTIONS (1)
  - SWELLING FACE [None]
